FAERS Safety Report 13734348 (Version 1)
Quarter: 2017Q3

REPORT INFORMATION
  Report Type: Spontaneous
  Country: US (occurrence: US)
  Receive Date: 20170709
  Receipt Date: 20170709
  Transmission Date: 20171127
  Serious: No
  Sender: FDA-Public Use
  Company Number: US-009507513-1706USA009027

PATIENT

DRUGS (6)
  1. GABAPENTIN. [Concomitant]
     Active Substance: GABAPENTIN
  2. WARFARIN [Concomitant]
     Active Substance: WARFARIN
  3. ZEPATIER [Suspect]
     Active Substance: ELBASVIR\GRAZOPREVIR
     Dosage: 50-100MG
     Route: 048
  4. CARVEDILOL. [Concomitant]
     Active Substance: CARVEDILOL
  5. SENNOSIDES. [Concomitant]
     Active Substance: SENNOSIDES
  6. BUMETANIDE. [Concomitant]
     Active Substance: BUMETANIDE

REACTIONS (2)
  - Diarrhoea [Unknown]
  - Faeces pale [Unknown]
